FAERS Safety Report 17619793 (Version 2)
Quarter: 2020Q2

REPORT INFORMATION
  Report Type: Report from Study
  Country: None (occurrence: EE)
  Receive Date: 20200403
  Receipt Date: 20200415
  Transmission Date: 20200713
  Serious: Yes (Hospitalization, Other)
  Sender: FDA-Public Use
  Company Number: EE-ABBVIE-20K-221-3348560-00

PATIENT
  Age: 66 Year
  Sex: Male

DRUGS (3)
  1. FLUDROCORTISONE ACETATE. [Concomitant]
     Active Substance: FLUDROCORTISONE ACETATE
     Indication: PARKINSON^S DISEASE
     Route: 048
     Dates: start: 20190809
  2. DUODOPA [Suspect]
     Active Substance: CARBIDOPA\LEVODOPA
     Indication: PARKINSON^S DISEASE
     Dosage: MORNING DOSE 13ML;??CONTINUOUS DOSE??3.0 ML/H;??EXTRA DOSE 2.0ML
     Route: 050
     Dates: start: 20160328
  3. CLOZAPINE. [Concomitant]
     Active Substance: CLOZAPINE
     Indication: PARKINSON^S DISEASE
     Route: 048
     Dates: start: 20200216

REACTIONS (5)
  - Confusion postoperative [Recovered/Resolved]
  - Nephrectomy [Recovered/Resolved]
  - Renal neoplasm [Recovered/Resolved]
  - Clear cell renal cell carcinoma [Recovered/Resolved]
  - Renal cancer [Recovered/Resolved]

NARRATIVE: CASE EVENT DATE: 202003
